FAERS Safety Report 8286419-X (Version None)
Quarter: 2012Q2

REPORT INFORMATION
  Report Type: 
  Country: None (occurrence: None)
  Receive Date: 20120411
  Receipt Date: 20120326
  Transmission Date: 20120825
  Serious: Yes (Other)
  Sender: FDA-Public Use
  Company Number: 2010-0485

PATIENT
  Age: 8 Year
  Sex: Male
  Weight: 28.5 kg

DRUGS (1)
  1. INCREALEX (INCRELEX 10MG/ML) (MECASERMIN) [Suspect]
     Indication: GROWTH HORMONE DEFICIENCY
     Dosage: 0.08 MG/KG (0.04 MG/KG, 2 IN 1 D)
     Dates: start: 20081023

REACTIONS (1)
  - THYROID NEOPLASM [None]
